FAERS Safety Report 23679330 (Version 1)
Quarter: 2024Q1

REPORT INFORMATION
  Report Type: Spontaneous
  Country: US (occurrence: US)
  Receive Date: 20240327
  Receipt Date: 20240327
  Transmission Date: 20240410
  Serious: Yes (Death, Hospitalization)
  Sender: FDA-Public Use
  Company Number: US-PARTNER THERAPEUTICS-2024PTX00010

PATIENT
  Age: 15 Year
  Sex: Female

DRUGS (4)
  1. LEUKINE [Suspect]
     Active Substance: SARGRAMOSTIM
     Indication: Glioblastoma
     Dosage: 250 MCG/M^2 ON DAYS 1 AND 2 (1.2 TREATMENT CYCLES)
     Route: 058
  2. PELAREOREP [Suspect]
     Active Substance: PELAREOREP
     Indication: Glioblastoma
     Dosage: DOSE LEVEL 1 (3 X 10^8TCID50KG/DOSE) OVER 60 MINUTES X 3 DAYS (1.2 TREATMENT CYCLES)
     Route: 042
  3. AMITRIPTYLINE [Suspect]
     Active Substance: AMITRIPTYLINE
  4. OXCARBAZEPINE [Suspect]
     Active Substance: OXCARBAZEPINE

REACTIONS (5)
  - Drug ineffective for unapproved indication [Fatal]
  - Off label use [Recovered/Resolved]
  - Hyponatraemia [Recovered/Resolved]
  - White blood cell count decreased [Recovered/Resolved]
  - Platelet count decreased [Recovered/Resolved]
